FAERS Safety Report 17105027 (Version 1)
Quarter: 2019Q4

REPORT INFORMATION
  Report Type: Spontaneous
  Country: US (occurrence: US)
  Receive Date: 20191107
  Receipt Date: 20191107
  Transmission Date: 20200122
  Serious: No
  Sender: FDA-Public Use
  Company Number: None

PATIENT
  Age: 60 Year
  Sex: Female
  Weight: 52.16 kg

DRUGS (9)
  1. CARVEDILOL. [Concomitant]
     Active Substance: CARVEDILOL
  2. FOLIC ACID. [Concomitant]
     Active Substance: FOLIC ACID
  3. AMIODARONE [Suspect]
     Active Substance: AMIODARONE
     Dosage: ?          QUANTITY:200 MG MILLIGRAM(S);?
     Route: 048
     Dates: start: 20180612, end: 201911
  4. ELIQUIS [Concomitant]
     Active Substance: APIXABAN
  5. DOFETILIDE. [Concomitant]
     Active Substance: DOFETILIDE
  6. FISH OIL [Suspect]
     Active Substance: FISH OIL
  7. CALCIUM SOFT [Concomitant]
  8. OSTEOBIFLEX [Concomitant]
  9. METOPROLOL. [Suspect]
     Active Substance: METOPROLOL
     Indication: ATRIAL FIBRILLATION
     Dosage: ?          QUANTITY:25 DF DOSAGE FORM;?
     Route: 048
     Dates: start: 20180612, end: 201911

REACTIONS (1)
  - Alopecia [None]

NARRATIVE: CASE EVENT DATE: 20180612
